FAERS Safety Report 20008160 (Version 1)
Quarter: 2021Q4

REPORT INFORMATION
  Report Type: Spontaneous
  Country: US (occurrence: US)
  Receive Date: 20211028
  Receipt Date: 20211028
  Transmission Date: 20220304
  Serious: No
  Sender: FDA-Public Use
  Company Number: US-TAKEDA-2021TUS065644

PATIENT
  Sex: Male

DRUGS (1)
  1. ADDERALL XR [Suspect]
     Active Substance: AMPHETAMINE ASPARTATE\AMPHETAMINE SULFATE\DEXTROAMPHETAMINE SACCHARATE\DEXTROAMPHETAMINE SULFATE
     Indication: Product used for unknown indication
     Route: 065

REACTIONS (7)
  - Sexual inhibition [Unknown]
  - Muscle rigidity [Unknown]
  - Feeling abnormal [Unknown]
  - Dysuria [Unknown]
  - Dyspnoea [Unknown]
  - Tremor [Unknown]
  - Decreased appetite [Unknown]
